FAERS Safety Report 6636903-7 (Version None)
Quarter: 2010Q1

REPORT INFORMATION
  Report Type: 
  Country: None (occurrence: None)
  Receive Date: 20100316
  Receipt Date: 20100308
  Transmission Date: 20100710
  Serious: Yes (Other)
  Sender: FDA-Public Use
  Company Number: PHHY2010GB13644

PATIENT
  Sex: Female

DRUGS (6)
  1. ENTACAPONE [Suspect]
     Indication: PARKINSON'S DISEASE
     Dosage: 800 MG/DAY
  2. PRAMIPEXOLE DIHYDROCHLORIDE [Suspect]
     Indication: DRUG EFFECT DECREASED
     Dosage: UNK
  3. PRAMIPEXOLE DIHYDROCHLORIDE [Suspect]
     Dosage: 06 MG, DAILY
  4. L-DOPA [Concomitant]
     Indication: PARKINSON'S DISEASE
     Dosage: UNK
     Dates: start: 19700101
  5. L-DOPA [Concomitant]
     Dosage: 600 MG, UNK
     Dates: start: 20060101
  6. L-DOPA [Concomitant]
     Dosage: 400 MG/DAY

REACTIONS (5)
  - COMPULSIVE SHOPPING [None]
  - GAMBLING [None]
  - HYPOMANIA [None]
  - MENTAL DISORDER [None]
  - OBSESSIVE-COMPULSIVE DISORDER [None]
